FAERS Safety Report 8021375-0 (Version None)
Quarter: 2012Q1

REPORT INFORMATION
  Report Type: 
  Country: None (occurrence: None)
  Receive Date: 20120104
  Receipt Date: 20111229
  Transmission Date: 20120608
  Serious: Yes (Hospitalization, Congenital Anomaly, Other)
  Sender: FDA-Public Use
  Company Number: US-PFIZER INC-2011158575

PATIENT
  Sex: Female
  Weight: 3.4 kg

DRUGS (2)
  1. EFFEXOR [Suspect]
     Indication: DEPRESSION
     Dosage: 37.5 MG, UNK
     Route: 064
     Dates: start: 20050419
  2. EFFEXOR XR [Suspect]
     Indication: DEPRESSION
     Dosage: 75 MG, UNK
     Route: 064
     Dates: start: 20050116

REACTIONS (12)
  - MATERNAL EXPOSURE TIMING UNSPECIFIED [None]
  - PULMONARY HYPERTENSION [None]
  - ACUTE RESPIRATORY FAILURE [None]
  - SEPSIS NEONATAL [None]
  - PNEUMONIA [None]
  - RESPIRATORY FAILURE [None]
  - ATRIAL SEPTAL DEFECT [None]
  - PATENT DUCTUS ARTERIOSUS [None]
  - CARDIOGENIC SHOCK [None]
  - TRICUSPID VALVE INCOMPETENCE [None]
  - MITRAL VALVE INCOMPETENCE [None]
  - CYANOSIS [None]
